FAERS Safety Report 5972438-2 (Version None)
Quarter: 2008Q4

REPORT INFORMATION
  Report Type: 
  Country: None (occurrence: None)
  Receive Date: 20081201
  Receipt Date: 20081125
  Transmission Date: 20090506
  Serious: Yes (Death)
  Sender: FDA-Public Use
  Company Number: PHHY2008BR29644

PATIENT
  Age: 97 Year
  Sex: Female

DRUGS (3)
  1. EXELON [Suspect]
     Indication: DEMENTIA ALZHEIMER'S TYPE
     Dosage: 1 DF, QD
     Route: 062
     Dates: start: 20080601
  2. ORAP [Concomitant]
     Indication: DEMENTIA ALZHEIMER'S TYPE
     Dosage: 1 TABLET IN THE MORNING
     Route: 048
  3. LORAZEPAM [Concomitant]
     Indication: DEMENTIA ALZHEIMER'S TYPE
     Dosage: 1 TABLET AT NIGHT
     Route: 048

REACTIONS (3)
  - MALAISE [None]
  - NERVOUSNESS [None]
  - RESPIRATORY FAILURE [None]
